FAERS Safety Report 9557954 (Version 5)
Quarter: 2014Q3

REPORT INFORMATION
  Report Type: Report from Study
  Country: US (occurrence: US)
  Receive Date: 20130926
  Receipt Date: 20140909
  Transmission Date: 20150326
  Serious: Yes (Hospitalization, Other)
  Sender: FDA-Public Use
  Company Number: US-TEVA-370243USA

PATIENT
  Age: 76 Year
  Sex: Female
  Weight: 67 kg

DRUGS (12)
  1. DEXAMETHASONE. [Concomitant]
     Active Substance: DEXAMETHASONE
  2. NAPROXEN. [Concomitant]
     Active Substance: NAPROXEN
     Dates: start: 20120821
  3. DOXORUBICIN NOS [Suspect]
     Active Substance: DOXORUBICIN
     Dosage: 37.5 MG/M2/68/MG/CONT. INFUSION/CYCLE #4
     Route: 042
     Dates: start: 20120919, end: 20120919
  4. OMEPRAZOLE. [Concomitant]
     Active Substance: OMEPRAZOLE
  5. ENOXAPARIN [Concomitant]
     Active Substance: ENOXAPARIN
  6. DOXORUBICIN NOS [Suspect]
     Active Substance: DOXORUBICIN
     Indication: SARCOMA METASTATIC
     Dosage: CYCLIC
     Route: 042
     Dates: start: 20120717, end: 20120717
  7. COSOPT [Concomitant]
     Active Substance: DORZOLAMIDE HYDROCHLORIDE\TIMOLOL MALEATE
  8. ATIVAN [Concomitant]
     Active Substance: LORAZEPAM
  9. IBUPROFEN. [Concomitant]
     Active Substance: IBUPROFEN
     Dates: start: 20110807
  10. COMPAZINE [Concomitant]
     Active Substance: PROCHLORPERAZINE MALEATE
     Dates: start: 20110807
  11. NYSTATIN. [Concomitant]
     Active Substance: NYSTATIN
  12. ZOFRAN [Concomitant]
     Active Substance: ONDANSETRON HYDROCHLORIDE
     Dates: start: 20120720

REACTIONS (3)
  - Pneumonitis [Not Recovered/Not Resolved]
  - Oesophageal candidiasis [Recovered/Resolved]
  - Anaemia [Unknown]

NARRATIVE: CASE EVENT DATE: 20121008
